FAERS Safety Report 6573253-1 (Version None)
Quarter: 2010Q1

REPORT INFORMATION
  Report Type: 
  Country: None (occurrence: None)
  Receive Date: 20100208
  Receipt Date: 20100129
  Transmission Date: 20100710
  Serious: Yes (Hospitalization)
  Sender: FDA-Public Use
  Company Number: BR-ABBOTT-09P-020-0560500-00

PATIENT
  Sex: Female
  Weight: 57 kg

DRUGS (4)
  1. HUMIRA [Suspect]
     Indication: CROHN'S DISEASE
     Route: 058
     Dates: start: 20081231
  2. MODULEN [Concomitant]
     Indication: GASTROINTESTINAL DISORDER
  3. OMEPRAZOLE [Concomitant]
     Indication: GASTRIC DISORDER
  4. OMEPRAZOLE [Concomitant]
     Indication: PROPHYLAXIS

REACTIONS (7)
  - ABDOMINAL DISTENSION [None]
  - ABNORMAL FAECES [None]
  - CROHN'S DISEASE [None]
  - FLATULENCE [None]
  - HEADACHE [None]
  - INJECTION SITE RASH [None]
  - INTESTINAL OBSTRUCTION [None]
